FAERS Safety Report 4725856-4 (Version None)
Quarter: 2005Q3

REPORT INFORMATION
  Report Type: 
  Country: None (occurrence: None)
  Receive Date: 20050722
  Receipt Date: 20050722
  Transmission Date: 20060218
  Serious: No
  Sender: FDA-Public Use
  Company Number: None

PATIENT
  Sex: Female

DRUGS (1)
  1. HABITROL [Suspect]
     Indication: SMOKING CESSATION THERAPY
     Dosage: 1 PATCH DAILY

REACTIONS (1)
  - APPLICATION SITE DERMATITIS [None]
